FAERS Safety Report 23518903 (Version 1)
Quarter: 2024Q1

REPORT INFORMATION
  Report Type: Spontaneous
  Country: US (occurrence: None)
  Receive Date: 20240212
  Receipt Date: 20240212
  Transmission Date: 20240409
  Serious: Yes (Death)
  Sender: FDA-Public Use
  Company Number: None

PATIENT
  Age: 72 Year
  Sex: Female

DRUGS (4)
  1. TACROLIMUS [Suspect]
     Active Substance: TACROLIMUS
  2. MYCOPHENOLIC ACID [Suspect]
     Active Substance: MYCOPHENOLIC ACID
  3. PREDNISONE [Suspect]
     Active Substance: PREDNISONE
  4. VORICONAZOLE [Suspect]
     Active Substance: VORICONAZOLE

REACTIONS (2)
  - Hypoxia [None]
  - Pneumonia [None]
